FAERS Safety Report 5015900-1 (Version None)
Quarter: 2006Q2

REPORT INFORMATION
  Report Type: 
  Country: None (occurrence: None)
  Receive Date: 20060526
  Receipt Date: 20060518
  Transmission Date: 20061013
  Serious: Yes (Death, Life-Threatening, Disabling)
  Sender: FDA-Public Use
  Company Number: 2006JP000561

PATIENT
  Age: 55 Year
  Sex: Female
  Weight: 43 kg

DRUGS (9)
  1. PROGRAF [Suspect]
     Indication: BONE MARROW TRANSPLANT
     Dosage: 0.7 MG, CONTINUOUS, IV DRIP
     Route: 041
     Dates: start: 20041116, end: 20041208
  2. GASTER D [Concomitant]
  3. ZOVIRAX [Concomitant]
  4. SOL MEDROL (METHYLPREDNISOLONE, SUCCINATE SODIUM) [Concomitant]
  5. MEROPEN (MEROPENEM) [Concomitant]
  6. VANCOMYCIN [Concomitant]
  7. NEUTROGIN (LENOGASTRIM) [Concomitant]
  8. METHOTREXATE SODIUM [Concomitant]
  9. DIFLUCAN [Concomitant]

REACTIONS (6)
  - CYTOMEGALOVIRUS INFECTION [None]
  - ENCEPHALOPATHY [None]
  - FEBRILE NEUTROPENIA [None]
  - GRAFT VERSUS HOST DISEASE [None]
  - HYDROCEPHALUS [None]
  - THROMBOTIC MICROANGIOPATHY [None]
